FAERS Safety Report 16340919 (Version 1)
Quarter: 2019Q2

REPORT INFORMATION
  Report Type: Spontaneous
  Country: FR (occurrence: FR)
  Receive Date: 20190522
  Receipt Date: 20190522
  Transmission Date: 20190711
  Serious: Yes (Life-Threatening, Other)
  Sender: FDA-Public Use
  Company Number: FR-AUROBINDO-AUR-APL-2019-026326

PATIENT

DRUGS (5)
  1. TRANDATE [Suspect]
     Active Substance: LABETALOL HYDROCHLORIDE
     Indication: HYPERTENSION
     Dosage: 200 MILLIGRAM, ONCE A DAY
     Route: 064
     Dates: start: 2018, end: 20180623
  2. LARGACTIL [Suspect]
     Active Substance: CHLORPROMAZINE
     Indication: PSYCHOTIC DISORDER
     Dosage: 3 GTT DROPS, ONCE A DAY(TOUS LES SOIRS)
     Route: 064
     Dates: start: 201709, end: 20180623
  3. TERCIAN [Suspect]
     Active Substance: CYAMEMAZINE
     Indication: PSYCHOTIC DISORDER
     Dosage: 3 GTT DROPS, ONCE A DAY(LE SOIR)
     Route: 064
     Dates: start: 201709, end: 201804
  4. SERTRALINE [Suspect]
     Active Substance: SERTRALINE HYDROCHLORIDE
     Indication: PSYCHOTIC DISORDER
     Dosage: 150 MILLIGRAM, ONCE A DAY
     Route: 064
     Dates: start: 201709, end: 20180623
  5. VENLAFAXINE [Suspect]
     Active Substance: VENLAFAXINE HYDROCHLORIDE
     Indication: PSYCHOTIC DISORDER
     Dosage: 75 MILLIGRAM, ONCE A DAY
     Route: 064
     Dates: start: 201709, end: 20180623

REACTIONS (3)
  - Neonatal respiratory distress [Recovered/Resolved]
  - Bradycardia neonatal [Recovered/Resolved]
  - Hypotonia neonatal [Recovered/Resolved]

NARRATIVE: CASE EVENT DATE: 20180623
